FAERS Safety Report 5361812-3 (Version None)
Quarter: 2007Q2

REPORT INFORMATION
  Report Type: 
  Country: None (occurrence: None)
  Receive Date: 20070619
  Receipt Date: 20070605
  Transmission Date: 20071010
  Serious: Yes (Death)
  Sender: FDA-Public Use
  Company Number: US-ELI_LILLY_AND_COMPANY-US200706001037

PATIENT
  Age: 19 Year
  Sex: Male

DRUGS (3)
  1. CYMBALTA [Suspect]
     Indication: DEPRESSION
     Dosage: 30 MG, UNK
     Dates: start: 20070101, end: 20070101
  2. CYMBALTA [Suspect]
     Dosage: 60 MG, UNK
     Dates: start: 20070101, end: 20070101
  3. CYMBALTA [Suspect]
     Dosage: 30 MG, UNK
     Dates: start: 20070101, end: 20070605

REACTIONS (1)
  - DEATH [None]
